FAERS Safety Report 14477714 (Version 1)
Quarter: 2018Q1

REPORT INFORMATION
  Report Type: Spontaneous
  Country: US (occurrence: US)
  Receive Date: 20180201
  Receipt Date: 20180201
  Transmission Date: 20180509
  Serious: No
  Sender: FDA-Public Use
  Company Number: US-EXELIXIS-CABO-17009328

PATIENT
  Sex: Male

DRUGS (8)
  1. OXYCODONE [Concomitant]
     Active Substance: OXYCODONE
  2. LEVOTHYROXINE. [Concomitant]
     Active Substance: LEVOTHYROXINE
  3. PAROXETINE. [Concomitant]
     Active Substance: PAROXETINE
  4. VITAMIN D [Concomitant]
     Active Substance: CHOLECALCIFEROL
  5. SENOKOT [Concomitant]
     Active Substance: SENNOSIDES
  6. CABOMETYX [Suspect]
     Active Substance: CABOZANTINIB S-MALATE
     Indication: RENAL CELL CARCINOMA
     Dosage: 60 MG, QD
     Route: 048
     Dates: start: 201702
  7. LOVENOX [Concomitant]
     Active Substance: ENOXAPARIN SODIUM
  8. ASPIRIN. [Concomitant]
     Active Substance: ASPIRIN

REACTIONS (3)
  - Impaired healing [Not Recovered/Not Resolved]
  - Metastases to bone [Unknown]
  - Cancer pain [Not Recovered/Not Resolved]
